FAERS Safety Report 24630610 (Version 1)
Quarter: 2024Q4

REPORT INFORMATION
  Report Type: Spontaneous
  Country: US (occurrence: US)
  Receive Date: 20241118
  Receipt Date: 20241118
  Transmission Date: 20250115
  Serious: No
  Sender: ABBVIE
  Company Number: US-ABBVIE-6003949

PATIENT
  Sex: Female

DRUGS (1)
  1. CREON [Suspect]
     Active Substance: PANCRELIPASE AMYLASE\PANCRELIPASE LIPASE\PANCRELIPASE PROTEASE
     Indication: Pancreatic failure
     Dosage: FORM STRENGTH 24,000 UNITS
     Route: 048

REACTIONS (5)
  - Malabsorption [Unknown]
  - Liquid product physical issue [Unknown]
  - Product taste abnormal [Unknown]
  - Abdominal pain [Unknown]
  - Steatorrhoea [Not Recovered/Not Resolved]
